FAERS Safety Report 25168640 (Version 2)
Quarter: 2025Q2

REPORT INFORMATION
  Report Type: Spontaneous
  Country: US (occurrence: US)
  Receive Date: 20250407
  Receipt Date: 20250410
  Transmission Date: 20250716
  Serious: Yes (Other)
  Sender: PFIZER
  Company Number: US-PFIZER INC-PV202500039830

PATIENT
  Age: 59 Year
  Sex: Male

DRUGS (4)
  1. IRINOTECAN HYDROCHLORIDE [Suspect]
     Active Substance: IRINOTECAN HYDROCHLORIDE
  2. OXALIPLATIN [Suspect]
     Active Substance: OXALIPLATIN
  3. LEUCOVORIN [Suspect]
     Active Substance: LEUCOVORIN\LEUCOVORIN CALCIUM
  4. FLUOROURACIL [Suspect]
     Active Substance: FLUOROURACIL

REACTIONS (3)
  - Malignant neoplasm progression [Unknown]
  - Discomfort [Unknown]
  - Fatigue [Unknown]
